FAERS Safety Report 5972918-X (Version None)
Quarter: 2008Q4

REPORT INFORMATION
  Report Type: 
  Country: None (occurrence: None)
  Receive Date: 20081126
  Receipt Date: 20081126
  Transmission Date: 20090506
  Serious: Yes (Disabling)
  Sender: FDA-Public Use
  Company Number: None

PATIENT
  Sex: Male
  Weight: 81.6475 kg

DRUGS (1)
  1. ALPRAZOLAM [Suspect]
     Indication: PANIC ATTACK
     Dosage: 2MG 3/DAY PO
     Route: 048
     Dates: start: 20070302, end: 20081122

REACTIONS (3)
  - ANXIETY [None]
  - DRUG DEPENDENCE [None]
  - HOSTILITY [None]
